FAERS Safety Report 23727132 (Version 1)
Quarter: 2024Q2

REPORT INFORMATION
  Report Type: Spontaneous
  Country: US (occurrence: None)
  Receive Date: 20240409
  Receipt Date: 20240409
  Transmission Date: 20240716
  Serious: No
  Sender: FDA-Public Use
  Company Number: None

PATIENT
  Age: 35 Year
  Sex: Female
  Weight: 51.75 kg

DRUGS (5)
  1. ATOMOXETINE HYDROCHLORIDE [Suspect]
     Active Substance: ATOMOXETINE HYDROCHLORIDE
     Indication: Premenstrual dysphoric disorder
     Dosage: OTHER QUANTITY : 30 CAPSULE(S);?
     Route: 048
     Dates: start: 20231118, end: 20231128
  2. LEVOTHYROXINE [Concomitant]
     Active Substance: LEVOTHYROXINE\LEVOTHYROXINE SODIUM
  3. MAGNESIUM GLYCINATE [Concomitant]
     Active Substance: MAGNESIUM GLYCINATE
  4. .GAMMA.-AMINOBUTYRIC ACID [Concomitant]
     Active Substance: .GAMMA.-AMINOBUTYRIC ACID
  5. DAILY MULTIVITAMIN [Concomitant]

REACTIONS (5)
  - Inflammation [None]
  - Alopecia [None]
  - Emotional distress [None]
  - Diffuse alopecia [None]
  - Seborrhoeic dermatitis [None]

NARRATIVE: CASE EVENT DATE: 20231119
